FAERS Safety Report 4711545-9 (Version None)
Quarter: 2005Q3

REPORT INFORMATION
  Report Type: 
  Country: None (occurrence: None)
  Receive Date: 20050712
  Receipt Date: 20050706
  Transmission Date: 20060218
  Serious: Yes (Other)
  Sender: FDA-Public Use
  Company Number: 200516196GDDC

PATIENT
  Age: 58 Year
  Sex: Male

DRUGS (3)
  1. LANTUS [Suspect]
     Indication: DIABETES MELLITUS
     Dosage: DOSE: 28-30; DOSE UNIT: UNITS
     Route: 058
     Dates: start: 20050326
  2. OPTIPEN (INSULIN PUMP) [Suspect]
     Dates: start: 20050326
  3. LISPRO [Concomitant]
     Indication: DIABETES MELLITUS
     Dates: start: 19980101

REACTIONS (7)
  - FATIGUE [None]
  - HYPERGLYCAEMIA [None]
  - INJECTION SITE REACTION [None]
  - IRRITABILITY [None]
  - PHARMACEUTICAL PRODUCT COMPLAINT [None]
  - THIRST [None]
  - WEIGHT DECREASED [None]
